FAERS Safety Report 6556133-7 (Version None)
Quarter: 2010Q1

REPORT INFORMATION
  Report Type: 
  Country: None (occurrence: None)
  Receive Date: 20100128
  Receipt Date: 20090423
  Transmission Date: 20100710
  Serious: No
  Sender: FDA-Public Use
  Company Number: US-TEVA-192652USA

PATIENT
  Sex: Female

DRUGS (12)
  1. COPAXONE [Suspect]
     Indication: MULTIPLE SCLEROSIS
     Route: 058
     Dates: start: 20071101, end: 20090401
  2. ZOLPIDEM TARTRATE [Concomitant]
  3. VICODIN [Concomitant]
  4. MODAFINIL [Concomitant]
  5. SERETIDE [Concomitant]
  6. ALBUTEROL [Concomitant]
  7. ARTHROTEC [Concomitant]
  8. FLUOXETINE [Concomitant]
  9. PREDNISONE [Concomitant]
  10. LEVOTHYROXINE SODIUM [Concomitant]
  11. LOSARTAN POTASSIUM [Concomitant]
  12. ZEDIA [Concomitant]

REACTIONS (3)
  - FLUSHING [None]
  - THROAT TIGHTNESS [None]
  - URTICARIA [None]
